FAERS Safety Report 4323261-6 (Version None)
Quarter: 2004Q1

REPORT INFORMATION
  Report Type: 
  Country: None (occurrence: None)
  Receive Date: 20040322
  Receipt Date: 20040309
  Transmission Date: 20041129
  Serious: Yes (Other)
  Sender: FDA-Public Use
  Company Number: 2004203460NO

PATIENT
  Age: 42 Year
  Sex: Female

DRUGS (1)
  1. CELEBRA (CELECOXIB) CAPSULE [Suspect]
     Dosage: ORAL
     Route: 048

REACTIONS (4)
  - CAROTID ARTERY OCCLUSION [None]
  - CEREBRAL INFARCTION [None]
  - HYPOAESTHESIA [None]
  - PERIPHERAL COLDNESS [None]
